FAERS Safety Report 25406881 (Version 1)
Quarter: 2025Q2

REPORT INFORMATION
  Report Type: Spontaneous
  Country: GB (occurrence: GB)
  Receive Date: 20250606
  Receipt Date: 20250606
  Transmission Date: 20250717
  Serious: Yes (Death, Life-Threatening, Hospitalization, Other)
  Sender: ELI LILLY AND COMPANY
  Company Number: None

PATIENT
  Age: 36 Year
  Sex: Female
  Weight: 140 kg

DRUGS (7)
  1. MOUNJARO [Suspect]
     Active Substance: TIRZEPATIDE
     Indication: Weight control
     Route: 065
     Dates: start: 20240420
  2. AMOXICILLIN [Concomitant]
     Active Substance: AMOXICILLIN
     Indication: Prophylaxis urinary tract infection
  3. CALCIUM CARBONATE\CHOLECALCIFEROL [Concomitant]
     Active Substance: CALCIUM CARBONATE\CHOLECALCIFEROL
     Indication: Calcium deficiency
  4. CALCIUM CARBONATE\CHOLECALCIFEROL [Concomitant]
     Active Substance: CALCIUM CARBONATE\CHOLECALCIFEROL
     Indication: Hypovitaminosis
  5. FERROUS SULFATE [Concomitant]
     Active Substance: FERROUS SULFATE
     Indication: Iron deficiency
  6. FORCEVAL [AMINO ACIDS NOS;ELECTROLYTES NOS;FE [Concomitant]
     Indication: Multi-vitamin deficiency
  7. METHENAMINE [Concomitant]
     Active Substance: METHENAMINE
     Indication: Prophylaxis urinary tract infection

REACTIONS (10)
  - Death [Fatal]
  - Pancreatitis [Unknown]
  - Respiratory failure [Unknown]
  - Urosepsis [Unknown]
  - Pleural effusion [Unknown]
  - Splenic haemorrhage [Unknown]
  - Tracheal haemorrhage [Unknown]
  - Splenic thrombosis [Unknown]
  - Bronchial varices [Unknown]
  - Pulmonary arterial pressure increased [Unknown]
